FAERS Safety Report 5824749-9 (Version None)
Quarter: 2008Q3

REPORT INFORMATION
  Report Type: 
  Country: None (occurrence: None)
  Receive Date: 20080722
  Receipt Date: 20080602
  Transmission Date: 20090109
  Serious: Yes (Other)
  Sender: FDA-Public Use
  Company Number: 2008US001802

PATIENT
  Sex: Male

DRUGS (1)
  1. FK506  (TACROLIMUS) INTMENT [Suspect]
     Dosage: 0.1%, TOPICAL
     Route: 061
     Dates: start: 20020411

REACTIONS (2)
  - RASH [None]
  - VIRAL INFECTION [None]
